FAERS Safety Report 9288041 (Version 1)
Quarter: 2013Q2

REPORT INFORMATION
  Report Type: Spontaneous
  Country: US (occurrence: None)
  Receive Date: 20130513
  Receipt Date: 20130513
  Transmission Date: 20140414
  Serious: No
  Sender: FDA-Public Use
  Company Number: None

PATIENT
  Age: 65 Year
  Sex: Female
  Weight: 59.42 kg

DRUGS (2)
  1. NEUPRO [Suspect]
     Indication: PARKINSON^S DISEASE
     Route: 062
     Dates: start: 20130410, end: 20130424
  2. NEUPRO [Suspect]
     Indication: PARKINSON^S DISEASE
     Route: 062
     Dates: start: 20130424, end: 20130503

REACTIONS (10)
  - Sedation [None]
  - Somnolence [None]
  - Diplopia [None]
  - Dyskinesia [None]
  - Hyperhidrosis [None]
  - Fluid retention [None]
  - Oedema peripheral [None]
  - Heart rate increased [None]
  - Blood pressure increased [None]
  - Weight increased [None]
